FAERS Safety Report 20667688 (Version 1)
Quarter: 2022Q2

REPORT INFORMATION
  Report Type: Spontaneous
  Country: CN (occurrence: CN)
  Receive Date: 20220404
  Receipt Date: 20220404
  Transmission Date: 20220721
  Serious: Yes (Other)
  Sender: FDA-Public Use
  Company Number: CN-JNJFOC-20220365626

PATIENT

DRUGS (3)
  1. INVOKANA [Suspect]
     Active Substance: CANAGLIFLOZIN
     Indication: Type 1 diabetes mellitus
     Route: 048
  2. INVOKANA [Suspect]
     Active Substance: CANAGLIFLOZIN
     Indication: Type 2 diabetes mellitus
  3. INVOKANA [Suspect]
     Active Substance: CANAGLIFLOZIN
     Indication: Product used for unknown indication

REACTIONS (7)
  - Diabetic ketoacidosis [Unknown]
  - Acute kidney injury [Unknown]
  - Hypotension [Unknown]
  - Genital infection fungal [Unknown]
  - Urinary tract infection [Unknown]
  - Low density lipoprotein increased [Unknown]
  - Overdose [Unknown]
